FAERS Safety Report 13065789 (Version 1)
Quarter: 2016Q4

REPORT INFORMATION
  Report Type: Spontaneous
  Country: JP (occurrence: JP)
  Receive Date: 20161227
  Receipt Date: 20161227
  Transmission Date: 20170207
  Serious: Yes (Other)
  Sender: FDA-Public Use
  Company Number: JP-PFIZER INC-2016594192

PATIENT
  Sex: Male

DRUGS (1)
  1. ZITHROMAC SR 2G [Suspect]
     Active Substance: AZITHROMYCIN MONOHYDRATE
     Dosage: UNK
     Route: 048
     Dates: start: 20161219

REACTIONS (5)
  - Vertigo [Unknown]
  - Hyperhidrosis [Unknown]
  - Nausea [Unknown]
  - Haematemesis [Unknown]
  - Urine output decreased [Unknown]

NARRATIVE: CASE EVENT DATE: 20161219
